FAERS Safety Report 24066016 (Version 1)
Quarter: 2024Q3

REPORT INFORMATION
  Report Type: Spontaneous
  Country: US (occurrence: None)
  Receive Date: 20240708
  Receipt Date: 20240708
  Transmission Date: 20241016
  Serious: No
  Sender: Public
  Company Number: None

PATIENT
  Age: 81 Year
  Sex: Male
  Weight: 84.15 kg

DRUGS (14)
  1. CIPROFLOXACIN [Suspect]
     Active Substance: CIPROFLOXACIN
     Dosage: FREQUENCY : TWICE A DAY;?OTHER ROUTE : IV THEN PO;?
     Route: 050
     Dates: start: 20240630, end: 20240708
  2. ASPIRIN [Concomitant]
     Active Substance: ASPIRIN
  3. ATORVASTATIN [Concomitant]
     Active Substance: ATORVASTATIN
  4. CLOPIDOGREL [Concomitant]
     Active Substance: CLOPIDOGREL BISULFATE
  5. COENZYME Q10 [Concomitant]
     Active Substance: DIETARY SUPPLEMENT\UBIDECARENONE
  6. DONEPEZIL HYDROCHLORIDE [Concomitant]
     Active Substance: DONEPEZIL HYDROCHLORIDE
  7. ENOXAPARIN [Concomitant]
     Active Substance: ENOXAPARIN
  8. LEVETIRACETAM [Concomitant]
     Active Substance: LEVETIRACETAM
  9. LISINOPRIL [Concomitant]
     Active Substance: LISINOPRIL
  10. MELATONIN [Concomitant]
     Active Substance: MELATONIN
  11. MEMANTINE [Concomitant]
     Active Substance: MEMANTINE
  12. OXYCODONE [Concomitant]
     Active Substance: OXYCODONE
  13. QUETIAPINE [Concomitant]
     Active Substance: QUETIAPINE
  14. VENLAFAXINE [Concomitant]
     Active Substance: VENLAFAXINE HYDROCHLORIDE

REACTIONS (1)
  - Rash maculo-papular [None]

NARRATIVE: CASE EVENT DATE: 20240708
